FAERS Safety Report 8529605-3 (Version None)
Quarter: 2012Q3

REPORT INFORMATION
  Report Type: 
  Country: None (occurrence: None)
  Receive Date: 20120717
  Receipt Date: 20120717
  Transmission Date: 20120928
  Serious: Yes (Hospitalization)
  Sender: FDA-Public Use
  Company Number: None

PATIENT
  Age: 60 Year
  Sex: Female
  Weight: 73.9363 kg

DRUGS (3)
  1. RIBAVIRIN [Suspect]
     Indication: HEPATITIS C
     Dosage: 200 IN PM 400 FOR AM
     Dates: start: 20120413, end: 20120530
  2. PEGASYS [Suspect]
     Dosage: PEGASYS 135
     Dates: start: 20120413, end: 20120530
  3. VICTRELIS [Concomitant]

REACTIONS (1)
  - ANAEMIA [None]
